FAERS Safety Report 7076732-6 (Version None)
Quarter: 2010Q4

REPORT INFORMATION
  Report Type: 
  Country: None (occurrence: None)
  Receive Date: 20101101
  Receipt Date: 20101020
  Transmission Date: 20110411
  Serious: Yes (Death)
  Sender: FDA-Public Use
  Company Number: US-CELGENEUS-163-21880-10102154

PATIENT
  Sex: Male

DRUGS (3)
  1. REVLIMID [Suspect]
     Indication: MULTIPLE MYELOMA
     Route: 048
     Dates: start: 20060801, end: 20060101
  2. REVLIMID [Suspect]
     Route: 048
     Dates: start: 20081201, end: 20090101
  3. REVLIMID [Suspect]
     Route: 048
     Dates: start: 20100601

REACTIONS (1)
  - DEATH [None]
